FAERS Safety Report 15881052 (Version 1)
Quarter: 2019Q1

REPORT INFORMATION
  Report Type: Spontaneous
  Country: JP (occurrence: JP)
  Receive Date: 20190128
  Receipt Date: 20190128
  Transmission Date: 20190417
  Serious: Yes (Other)
  Sender: FDA-Public Use
  Company Number: JP-SA-2019SA022137

PATIENT
  Age: 35 Year
  Sex: Female

DRUGS (3)
  1. XYZAL [Suspect]
     Active Substance: LEVOCETIRIZINE DIHYDROCHLORIDE
     Indication: PRURITUS
     Dosage: 5 MG, QD
     Route: 048
     Dates: start: 20171225, end: 20180225
  2. SMILE 40 EX [Suspect]
     Active Substance: CHLORPHENIRAMINE\NEOSTIGMINE METILSULFATE\POTASSIUM\TETRAHYDROZOLINE\VITAMINS
     Indication: EYE PRURITUS
     Dosage: UNK UNK, UNK
     Route: 047
  3. DIPHENHYDRAMINE HYDROCHLORIDE. [Suspect]
     Active Substance: DIPHENHYDRAMINE HYDROCHLORIDE
     Indication: PRURITUS
     Dosage: UNK UNK, UNK
     Route: 061
     Dates: start: 20171225

REACTIONS (4)
  - Disease progression [Not Recovered/Not Resolved]
  - Alopecia totalis [Not Recovered/Not Resolved]
  - Madarosis [Unknown]
  - Alopecia areata [Not Recovered/Not Resolved]

NARRATIVE: CASE EVENT DATE: 20171225
